FAERS Safety Report 10167473 (Version 2)
Quarter: 2014Q4

REPORT INFORMATION
  Report Type: Spontaneous
  Country: IT (occurrence: IT)
  Receive Date: 20140512
  Receipt Date: 20141031
  Transmission Date: 20150528
  Serious: Yes (Hospitalization)
  Sender: FDA-Public Use
  Company Number: IT-ACTAVIS-2014-09450

PATIENT
  Age: 52 Year
  Sex: Female

DRUGS (4)
  1. LANSOPRAZOLE (UNKNOWN) [Suspect]
     Active Substance: LANSOPRAZOLE
     Indication: GASTROOESOPHAGEAL REFLUX DISEASE
     Dosage: 30 MG, TOTAL
     Route: 048
     Dates: start: 20140310, end: 20140310
  2. CLAVULIN                           /00756801/ [Suspect]
     Active Substance: AMOXICILLIN\CLAVULANIC ACID
     Indication: INFLUENZA
     Dosage: 2 DF, DAILY
     Route: 048
     Dates: start: 20140308, end: 20140311
  3. OMEPRAZEN                          /00661201/ [Concomitant]
     Active Substance: OMEPRAZOLE
     Indication: PRODUCT USED FOR UNKNOWN INDICATION
     Dosage: 20 MG, UNK
     Route: 048
  4. BRUFEN                             /00109201/ [Suspect]
     Active Substance: IBUPROFEN
     Indication: TENDONITIS
     Dosage: 800 MG, DAILY
     Route: 048
     Dates: start: 20140310, end: 20140311

REACTIONS (4)
  - Skin lesion [Recovered/Resolved]
  - Urticaria [Recovered/Resolved]
  - Rash generalised [Recovered/Resolved]
  - Pruritus [Recovered/Resolved]

NARRATIVE: CASE EVENT DATE: 20140312
